FAERS Safety Report 6735961-9 (Version None)
Quarter: 2010Q2

REPORT INFORMATION
  Report Type: 
  Country: None (occurrence: None)
  Receive Date: 20100521
  Receipt Date: 20100513
  Transmission Date: 20101027
  Serious: Yes (Death)
  Sender: FDA-Public Use
  Company Number: B0653373A

PATIENT
  Sex: Female

DRUGS (1)
  1. TYKERB [Suspect]
     Indication: BREAST CANCER
     Dosage: 5IUAX PER DAY
     Route: 048
     Dates: start: 20100101, end: 20100301

REACTIONS (1)
  - NEOPLASM MALIGNANT [None]
